FAERS Safety Report 10789389 (Version 1)
Quarter: 2015Q1

REPORT INFORMATION
  Report Type: Spontaneous
  Country: US (occurrence: US)
  Receive Date: 20150212
  Receipt Date: 20150212
  Transmission Date: 20150721
  Serious: No
  Sender: FDA-Public Use
  Company Number: US-GLAXOSMITHKLINE-A1086331A

PATIENT

DRUGS (1)
  1. FLOVENT [Suspect]
     Active Substance: FLUTICASONE PROPIONATE
     Indication: LICHEN PLANUS
     Dosage: INH 220MCG
     Route: 048

REACTIONS (2)
  - Incorrect route of drug administration [Unknown]
  - Off label use [Unknown]
